FAERS Safety Report 11726580 (Version 3)
Quarter: 2015Q4

REPORT INFORMATION
  Report Type: Report from Study
  Country: DE (occurrence: DE)
  Receive Date: 20151112
  Receipt Date: 20151202
  Transmission Date: 20160304
  Serious: Yes (Other)
  Sender: FDA-Public Use
  Company Number: DE-BEH-2015055609

PATIENT
  Age: 85 Year
  Sex: Female
  Weight: 58 kg

DRUGS (15)
  1. FENTANYL. [Concomitant]
     Active Substance: FENTANYL
  2. LACTOLOSE [Concomitant]
     Indication: OBSTRUCTIVE DEFAECATION
  3. PRIVIGEN [Suspect]
     Active Substance: HUMAN IMMUNOGLOBULIN G
     Indication: PLASMA CELL MYELOMA
     Dosage: INFUSION RATE 1.7 ML/MIN
     Route: 042
     Dates: start: 20150928, end: 20150928
  4. PREGABALIN. [Concomitant]
     Active Substance: PREGABALIN
     Indication: PAIN
     Dosage: 1-1-1
  5. RAMIPRIL. [Concomitant]
     Active Substance: RAMIPRIL
     Dosage: 5; 1/2 IN THE MORNING
  6. PREDNIHEXAL [Concomitant]
     Active Substance: PREDNISOLONE ACETATE
     Indication: RHEUMATIC DISORDER
     Dosage: 5; 1 IN THE MORNING
  7. DEKRISTOL VITAMIN D [Concomitant]
     Dosage: 20.000
  8. OMEPRAZOLE. [Concomitant]
     Active Substance: OMEPRAZOLE
     Dosage: 40; 1 IN THE MORNING; STOMACH
  9. CALCIUM (EFFERVESCENT TABLET) [Concomitant]
     Dosage: 1.000; 1 AT NOON
  10. CITALOPRAM [Concomitant]
     Active Substance: CITALOPRAM HYDROBROMIDE
     Dosage: 1 IN THE MORNING
  11. BISOPROLOL [Concomitant]
     Active Substance: BISOPROLOL
     Dosage: 2.5; 1 IN THE MORNING
  12. ASA PROTECT [Concomitant]
     Dosage: 1 IN THE MORNING
  13. TORASEMIDE [Concomitant]
     Active Substance: TORSEMIDE
     Indication: DIURETIC THERAPY
     Dosage: 1 IN THE MORNING
  14. SIMVAHEXAL [Concomitant]
     Active Substance: SIMVASTATIN
     Dosage: 20
  15. OTHER ANTI-ASTHMATICS, INHALANTS [Concomitant]
     Dosage: 100/6; 2 IN THE MORNING

REACTIONS (2)
  - Chills [Recovered/Resolved]
  - Oxygen saturation decreased [Recovered/Resolved]

NARRATIVE: CASE EVENT DATE: 20150928
